FAERS Safety Report 25143201 (Version 1)
Quarter: 2025Q2

REPORT INFORMATION
  Report Type: Spontaneous
  Country: US (occurrence: US)
  Receive Date: 20250401
  Receipt Date: 20250401
  Transmission Date: 20250716
  Serious: Yes (Hospitalization)
  Sender: MARKSANS
  Company Number: US-MARKSANS PHARMA LIMITED-MPL202500027

PATIENT

DRUGS (3)
  1. METFORMIN HYDROCHLORIDE [Suspect]
     Active Substance: METFORMIN HYDROCHLORIDE
     Indication: Type 1 diabetes mellitus
     Route: 065
  2. APIXABAN [Concomitant]
     Active Substance: APIXABAN
     Indication: Product used for unknown indication
     Route: 065
  3. ASPIRIN [Concomitant]
     Active Substance: ASPIRIN
     Indication: Product used for unknown indication
     Route: 065

REACTIONS (5)
  - Morel-Lavallee seroma [Recovered/Resolved]
  - Fall [Recovered/Resolved]
  - Vitamin B12 deficiency [Recovered/Resolved]
  - Balance disorder [Recovered/Resolved]
  - Dizziness [Unknown]
